FAERS Safety Report 5030449-8 (Version None)
Quarter: 2006Q2

REPORT INFORMATION
  Report Type: 
  Country: None (occurrence: None)
  Receive Date: 20060615
  Receipt Date: 20060608
  Transmission Date: 20061013
  Serious: Yes (Hospitalization)
  Sender: FDA-Public Use
  Company Number: 230210K06USA

PATIENT
  Sex: Female

DRUGS (5)
  1. REBIF [Suspect]
     Indication: MULTIPLE SCLEROSIS
     Dosage: 44 MCG, 3 IN 1 WEEKS, SUBCUTANEOUS
     Route: 058
     Dates: start: 20050801
  2. ADVAIR DISKUS 100/50 [Concomitant]
  3. SPIRIVA [Concomitant]
  4. DIOVAN [Concomitant]
  5. NORVASC [Concomitant]

REACTIONS (4)
  - CONDITION AGGRAVATED [None]
  - HYPOAESTHESIA [None]
  - MULTIPLE SCLEROSIS [None]
  - PNEUMONIA [None]
